FAERS Safety Report 7344448-4 (Version None)
Quarter: 2011Q1

REPORT INFORMATION
  Report Type: 
  Country: None (occurrence: None)
  Receive Date: 20110310
  Receipt Date: 20110210
  Transmission Date: 20110831
  Serious: No
  Sender: FDA-Public Use
  Company Number: A0913095A

PATIENT
  Age: 49 Year
  Sex: Male

DRUGS (1)
  1. NICORETTE [Suspect]
     Indication: SMOKING CESSATION THERAPY
     Dates: start: 20110208, end: 20110201

REACTIONS (2)
  - HICCUPS [None]
  - NAUSEA [None]
